FAERS Safety Report 22108867 (Version 1)
Quarter: 2023Q1

REPORT INFORMATION
  Report Type: Report from Study
  Country: US (occurrence: US)
  Receive Date: 20230317
  Receipt Date: 20230317
  Transmission Date: 20230417
  Serious: Yes (Hospitalization)
  Sender: FDA-Public Use
  Company Number: US-GILEAD-2023-0620365

PATIENT
  Sex: Female

DRUGS (2)
  1. AZTREONAM LYSINE [Suspect]
     Active Substance: AZTREONAM LYSINE
     Indication: Cystic fibrosis
     Dosage: INHALE 75 MG (1 VIAL) VIA ALTERA NEBULIZER 3 TIMES DAILY 28 DAYS ON AND 28 DAYS OFF
     Route: 055
     Dates: start: 202107
  2. COLISTIN [Concomitant]
     Active Substance: COLISTIN
     Dosage: UNK
     Route: 065

REACTIONS (1)
  - Illness [Unknown]
